FAERS Safety Report 5749387-8 (Version None)
Quarter: 2008Q2

REPORT INFORMATION
  Report Type: 
  Country: None (occurrence: None)
  Receive Date: 20080527
  Receipt Date: 20080424
  Transmission Date: 20081010
  Serious: No
  Sender: FDA-Public Use
  Company Number: US-BAYER-US-2007-001592

PATIENT
  Sex: Female

DRUGS (1)
  1. MIRENA [Suspect]
     Indication: CONTRACEPTION
     Route: 015
     Dates: start: 20060901

REACTIONS (4)
  - AMENORRHOEA [None]
  - BREAST TENDERNESS [None]
  - GENITAL HAEMORRHAGE [None]
  - WEIGHT INCREASED [None]
